FAERS Safety Report 15411213 (Version 2)
Quarter: 2018Q3

REPORT INFORMATION
  Report Type: Report from Study
  Country: JP (occurrence: JP)
  Receive Date: 20180921
  Receipt Date: 20180928
  Transmission Date: 20181010
  Serious: Yes (Other)
  Sender: FDA-Public Use
  Company Number: JP-ROCHE-2187898

PATIENT

DRUGS (3)
  1. BEVACIZUMAB. [Suspect]
     Active Substance: BEVACIZUMAB
     Indication: OVARIAN EPITHELIAL CANCER
     Dosage: IN CYCLES 2 THROUGH 4
     Route: 065
  2. PACLITAXEL. [Suspect]
     Active Substance: PACLITAXEL
     Indication: OVARIAN EPITHELIAL CANCER
     Dosage: IN CYCLES 1 THROUGH 4
     Route: 065
  3. CARBOPLATIN. [Suspect]
     Active Substance: CARBOPLATIN
     Indication: OVARIAN EPITHELIAL CANCER
     Dosage: AUC: 6 MG/ML/MIN?IN CYCLES 1 THROUGH 4
     Route: 065

REACTIONS (10)
  - Febrile neutropenia [Unknown]
  - Thrombocytopenia [Unknown]
  - Abscess [Unknown]
  - Fatigue [Unknown]
  - Neuropathy peripheral [Unknown]
  - Proteinuria [Unknown]
  - Haemorrhage [Unknown]
  - Hypertension [Unknown]
  - Neutropenia [Unknown]
  - Anaemia [Unknown]
